FAERS Safety Report 10552234 (Version 1)
Quarter: 2014Q4

REPORT INFORMATION
  Report Type: Report from Study
  Country: CO (occurrence: CO)
  Receive Date: 20141029
  Receipt Date: 20141029
  Transmission Date: 20150529
  Serious: Yes (Other)
  Sender: FDA-Public Use
  Company Number: CO-ABBVIE-14K-036-1300711-00

PATIENT
  Age: 13 Year
  Sex: Male
  Weight: 45 kg

DRUGS (1)
  1. HUMIRA [Suspect]
     Active Substance: ADALIMUMAB
     Indication: COLITIS ULCERATIVE
     Route: 058
     Dates: start: 20120913, end: 20140925

REACTIONS (2)
  - Procedural pain [Recovering/Resolving]
  - Ileostomy closure [Recovering/Resolving]

NARRATIVE: CASE EVENT DATE: 20141023
